FAERS Safety Report 9701295 (Version 1)
Quarter: 2013Q4

REPORT INFORMATION
  Report Type: Spontaneous
  Country: US (occurrence: US)
  Receive Date: 20131121
  Receipt Date: 20131121
  Transmission Date: 20140711
  Serious: No
  Sender: FDA-Public Use
  Company Number: US-GILEAD-2008-0016316

PATIENT
  Age: 68 Year
  Sex: Female
  Weight: 96.61 kg

DRUGS (6)
  1. LETAIRIS [Suspect]
     Indication: PULMONARY HYPERTENSION
     Route: 048
     Dates: start: 20080401
  2. REVATIO [Concomitant]
     Route: 048
  3. COUMADIN [Concomitant]
     Route: 048
  4. LASIX [Concomitant]
     Route: 048
  5. CALCITRIOL [Concomitant]
     Route: 048
  6. SYNTHROID [Concomitant]
     Route: 048

REACTIONS (1)
  - Nasal congestion [None]
